FAERS Safety Report 5522528-3 (Version None)
Quarter: 2007Q4

REPORT INFORMATION
  Report Type: 
  Country: None (occurrence: None)
  Receive Date: 20071120
  Receipt Date: 20071115
  Transmission Date: 20080405
  Serious: Yes (Death)
  Sender: FDA-Public Use
  Company Number: DE-ELI_LILLY_AND_COMPANY-DE200711003396

PATIENT
  Age: 51 Year
  Sex: Female

DRUGS (4)
  1. BYETTA [Suspect]
     Dosage: 5 UG, UNKNOWN
     Route: 058
     Dates: start: 20070903, end: 20071001
  2. BYETTA [Suspect]
     Dosage: 10 UG, UNKNOWN
     Route: 058
     Dates: start: 20071001
  3. METFORMIN HYDROCHLORIDE [Concomitant]
     Dosage: 1000 MG, UNKNOWN
  4. GLIMEPIRIDE [Concomitant]
     Dosage: 6 MG, 3/D

REACTIONS (3)
  - DEATH [None]
  - DIARRHOEA [None]
  - VOMITING [None]
